FAERS Safety Report 5951596-X (Version None)
Quarter: 2008Q4

REPORT INFORMATION
  Report Type: 
  Country: None (occurrence: None)
  Receive Date: 20081113
  Receipt Date: 20081107
  Transmission Date: 20090506
  Serious: Yes (Death, Other)
  Sender: FDA-Public Use
  Company Number: PHHY2008JP23184

PATIENT
  Age: 62 Year
  Sex: Male

DRUGS (3)
  1. GLEEVEC [Suspect]
     Indication: CHRONIC MYELOID LEUKAEMIA
     Dosage: UNK
     Route: 048
     Dates: start: 20010701, end: 20060101
  2. SPRYCEL [Suspect]
     Indication: CHRONIC MYELOID LEUKAEMIA
     Dosage: UNK
     Dates: start: 20070601
  3. NEUTROGIN [Suspect]
     Dosage: UNK
     Dates: end: 20060101

REACTIONS (9)
  - ACUTE MYELOID LEUKAEMIA [None]
  - ALLOGENIC BONE MARROW TRANSPLANTATION THERAPY [None]
  - CHROMOSOME ANALYSIS ABNORMAL [None]
  - ERYTHROBLASTOSIS [None]
  - MYELOBLAST COUNT INCREASED [None]
  - MYELODYSPLASTIC SYNDROME [None]
  - PANCYTOPENIA [None]
  - PYREXIA [None]
  - WHITE BLOOD CELL COUNT INCREASED [None]
